FAERS Safety Report 13616036 (Version 4)
Quarter: 2017Q2

REPORT INFORMATION
  Report Type: Report from Study
  Country: CO (occurrence: CO)
  Receive Date: 20170606
  Receipt Date: 20170629
  Transmission Date: 20170830
  Serious: Yes (Hospitalization, Other)
  Sender: FDA-Public Use
  Company Number: CO-AMGEN-COLSL2017026995

PATIENT
  Age: 65 Year
  Sex: Male
  Weight: 66 kg

DRUGS (3)
  1. NPLATE [Suspect]
     Active Substance: ROMIPLOSTIM
     Indication: IMMUNE THROMBOCYTOPENIC PURPURA
     Dosage: 250 MCG, QWK
     Route: 058
     Dates: start: 20160425
  2. AZACITIDINE. [Concomitant]
     Active Substance: AZACITIDINE
     Dosage: 100 MG, UNK
  3. NPLATE [Suspect]
     Active Substance: ROMIPLOSTIM
     Dosage: 700 MCG, QWK
     Route: 058
     Dates: start: 20160425

REACTIONS (7)
  - Haemoglobin decreased [Recovering/Resolving]
  - Pyrexia [Recovered/Resolved]
  - Epistaxis [Recovered/Resolved]
  - Drug dose omission [Unknown]
  - Diabetes mellitus [Recovering/Resolving]
  - Thrombocytopenia [Recovering/Resolving]
  - Pallor [Not Recovered/Not Resolved]

NARRATIVE: CASE EVENT DATE: 20170209
